FAERS Safety Report 17066992 (Version 1)
Quarter: 2019Q4

REPORT INFORMATION
  Report Type: Spontaneous
  Country: US (occurrence: US)
  Receive Date: 20191122
  Receipt Date: 20191122
  Transmission Date: 20200122
  Serious: Yes (Death)
  Sender: FDA-Public Use
  Company Number: US-ASTRAZENECA-2019SF66127

PATIENT
  Age: 11 Month
  Sex: Male
  Weight: 5.8 kg

DRUGS (7)
  1. SYNTHROID [Concomitant]
     Active Substance: LEVOTHYROXINE SODIUM
  2. SYNAGIS [Suspect]
     Active Substance: PALIVIZUMAB
     Indication: PREMATURE BABY
     Dosage: 50MG/0.5ML, MONTHLY.
     Route: 030
     Dates: start: 20191115
  3. SYNAGIS [Suspect]
     Active Substance: PALIVIZUMAB
     Indication: LUNG DISORDER
     Dosage: 50MG/0.5ML, MONTHLY.
     Route: 030
     Dates: start: 20191115
  4. FLOVENT [Concomitant]
     Active Substance: FLUTICASONE PROPIONATE
     Dosage: HFA 44 MCG/ACT
  5. D-VI-SOL [Concomitant]
  6. ALBUTEROL. [Concomitant]
     Active Substance: ALBUTEROL
  7. SPIRONOLACTONE. [Concomitant]
     Active Substance: SPIRONOLACTONE

REACTIONS (2)
  - Ill-defined disorder [Unknown]
  - Death [Fatal]

NARRATIVE: CASE EVENT DATE: 20191117
